FAERS Safety Report 7444911-1 (Version None)
Quarter: 2011Q2

REPORT INFORMATION
  Report Type: 
  Country: None (occurrence: None)
  Receive Date: 20110429
  Receipt Date: 20110425
  Transmission Date: 20111010
  Serious: Yes (Life-Threatening)
  Sender: FDA-Public Use
  Company Number: US-ASTRAZENECA-2011SE23769

PATIENT
  Age: 914 Month
  Sex: Female
  Weight: 93 kg

DRUGS (4)
  1. ZD6474 [Suspect]
     Dosage: CYCLE 6
     Route: 048
     Dates: end: 20101228
  2. ZD6474 [Suspect]
     Indication: OVARIAN EPITHELIAL CANCER
     Route: 048
     Dates: start: 20100722
  3. DOCETAXEL [Suspect]
     Indication: OVARIAN EPITHELIAL CANCER
     Route: 042
     Dates: end: 20101216
  4. DOCETAXEL [Suspect]
     Dosage: CYCLE 6
     Route: 042

REACTIONS (1)
  - NEUTROPHIL COUNT DECREASED [None]
